FAERS Safety Report 4339896-0 (Version None)
Quarter: 2004Q2

REPORT INFORMATION
  Report Type: 
  Country: None (occurrence: None)
  Receive Date: 20040412
  Receipt Date: 20040329
  Transmission Date: 20050107
  Serious: No
  Sender: FDA-Public Use
  Company Number: 2004CG00630

PATIENT
  Sex: Female

DRUGS (1)
  1. NAROPEINE [Suspect]
     Indication: LOCAL ANAESTHESIA

REACTIONS (2)
  - MOTOR DYSFUNCTION [None]
  - PARAESTHESIA [None]
